FAERS Safety Report 7586668-X (Version None)
Quarter: 2011Q3

REPORT INFORMATION
  Report Type: 
  Country: None (occurrence: None)
  Receive Date: 20110701
  Receipt Date: 20110627
  Transmission Date: 20111222
  Serious: Yes (Hospitalization, Other)
  Sender: FDA-Public Use
  Company Number: US-ELI_LILLY_AND_COMPANY-US200812002357

PATIENT
  Sex: Female
  Weight: 111.11 kg

DRUGS (13)
  1. BYETTA [Suspect]
     Dosage: 10 UG, 2/D
     Route: 065
     Dates: start: 20080301, end: 20080801
  2. LIPITOR [Concomitant]
     Dosage: 20 MG, DAILY (1/D)
     Dates: start: 20080401
  3. CLONAZEPAM [Concomitant]
     Dosage: 0.5 MG, OTHER
     Dates: start: 20080101
  4. GABAPENTIN [Concomitant]
     Dates: start: 20080201
  5. BYETTA [Suspect]
     Dosage: 5 UG, 2/D
     Dates: start: 20080306
  6. QUINAPRIL HCL [Concomitant]
     Dosage: 20 MG, DAILY (1/D)
     Dates: end: 20080701
  7. QUINAPRIL HCL [Concomitant]
     Dosage: 40 MG, DAILY (1/D)
     Dates: start: 20080701
  8. POTASSIUM [Concomitant]
     Dosage: 10 MEQ, DAILY (1/D)
  9. GABAPENTIN [Concomitant]
     Dates: end: 20080201
  10. XANAX [Concomitant]
  11. CARAFATE [Concomitant]
     Dosage: UNK, UNKNOWN
  12. PROTONIX [Concomitant]
     Dosage: 40 MG, DAILY (1/D)
  13. LOVENOX [Concomitant]
     Dosage: UNK, 2/D
     Route: 058
     Dates: start: 20080701

REACTIONS (14)
  - PANCREATITIS [None]
  - CONTUSION [None]
  - BACK PAIN [None]
  - WEIGHT DECREASED [None]
  - HYPOKALAEMIA [None]
  - LOSS OF CONSCIOUSNESS [None]
  - HAEMATOCHEZIA [None]
  - DYSGEUSIA [None]
  - DYSURIA [None]
  - DIZZINESS [None]
  - FALL [None]
  - NECK INJURY [None]
  - LIMB INJURY [None]
  - BALANCE DISORDER [None]
